FAERS Safety Report 8695924 (Version 2)
Quarter: 2013Q4

REPORT INFORMATION
  Report Type: Spontaneous
  Country: US (occurrence: US)
  Receive Date: 20120801
  Receipt Date: 20131101
  Transmission Date: 20140711
  Serious: No
  Sender: FDA-Public Use
  Company Number: US-009507513-1207USA011550

PATIENT
  Sex: Male

DRUGS (2)
  1. PEGINTRON [Suspect]
     Indication: HEPATITIS C
     Dosage: 150MCG, QW
     Route: 058
     Dates: start: 20120119
  2. REBETOL [Suspect]
     Dosage: 600 MG, BID
     Route: 048

REACTIONS (1)
  - Drug ineffective [Unknown]
